FAERS Safety Report 13522221 (Version 1)
Quarter: 2017Q2

REPORT INFORMATION
  Report Type: Spontaneous
  Country: FR (occurrence: FR)
  Receive Date: 20170508
  Receipt Date: 20170508
  Transmission Date: 20170830
  Serious: Yes (Hospitalization, Congenital Anomaly, Other)
  Sender: FDA-Public Use
  Company Number: FR-GLAXOSMITHKLINE-FR2017GSK066618

PATIENT
  Sex: Male

DRUGS (4)
  1. DEPAKINE CHRONO [Suspect]
     Active Substance: VALPROATE SODIUM
     Indication: EPILEPSY
     Dosage: 1 DF, QID (TABLET
     Route: 064
     Dates: start: 20140407, end: 20141219
  2. LAMICTAL [Suspect]
     Active Substance: LAMOTRIGINE
     Indication: EPILEPSY
     Dosage: 1 DF, Z (TABLET)
     Route: 064
     Dates: start: 20140407, end: 20141219
  3. ALEPSAL (FRANCE) [Suspect]
     Active Substance: CAFFEINE\PHENOBARBITAL
     Indication: EPILEPSY
     Dosage: 1 DF, 1D (TABLET)
     Route: 064
     Dates: start: 20140407, end: 20141219
  4. SUBUTEX [Suspect]
     Active Substance: BUPRENORPHINE HYDROCHLORIDE
     Indication: EPILEPSY
     Dosage: 4 MG, 1D
     Dates: start: 20140407, end: 20141219

REACTIONS (4)
  - Foetal anticonvulsant syndrome [Not Recovered/Not Resolved]
  - Agitation neonatal [Recovered/Resolved]
  - Foetal exposure during pregnancy [Unknown]
  - Drug withdrawal syndrome neonatal [Recovered/Resolved]

NARRATIVE: CASE EVENT DATE: 20141219
